FAERS Safety Report 9895886 (Version 1)
Quarter: 2014Q1

REPORT INFORMATION
  Report Type: Spontaneous
  Country: US (occurrence: US)
  Receive Date: 20140213
  Receipt Date: 20140213
  Transmission Date: 20141002
  Serious: No
  Sender: FDA-Public Use
  Company Number: US-BRISTOL-MYERS SQUIBB COMPANY-17301052

PATIENT
  Age: 50 Year
  Sex: Female

DRUGS (5)
  1. ABATACEPT SUBQ INJECTION 125MG/ML [Suspect]
     Dosage: 1DF=125MG/1ML
     Route: 058
  2. DESYREL [Concomitant]
     Dosage: TAB
  3. ALLEGRA [Concomitant]
     Dosage: FORMULATION-ALLEGRA TAB 30MG
  4. AMITRIPTYLINE [Concomitant]
     Dosage: TAB
  5. LORTAB [Concomitant]
     Dosage: LORTAB 5 TAB

REACTIONS (1)
  - Oropharyngeal pain [Unknown]
